FAERS Safety Report 9176791 (Version 1)
Quarter: 2013Q1

REPORT INFORMATION
  Report Type: Spontaneous
  Country: US (occurrence: US)
  Receive Date: 20130321
  Receipt Date: 20130321
  Transmission Date: 20140127
  Serious: Yes (Other)
  Sender: FDA-Public Use
  Company Number: US-PFIZER INC-2013089064

PATIENT
  Age: 70 Year
  Sex: Male
  Weight: 50.79 kg

DRUGS (2)
  1. VIAGRA [Suspect]
     Indication: ERECTILE DYSFUNCTION
     Dosage: 250 MG, UNK
     Route: 048
  2. VIAGRA [Suspect]
     Dosage: 23 TO 24 TABLETS
     Route: 048

REACTIONS (5)
  - Overdose [Unknown]
  - Erection increased [Unknown]
  - Genital swelling [Unknown]
  - Penile contusion [Unknown]
  - Penile pain [Unknown]
